FAERS Safety Report 10645439 (Version 7)
Quarter: 2018Q3

REPORT INFORMATION
  Report Type: Spontaneous
  Country: US (occurrence: US)
  Receive Date: 20141211
  Receipt Date: 20180816
  Transmission Date: 20181010
  Serious: Yes (Other)
  Sender: FDA-Public Use
  Company Number: US-SA-2014SA167869

PATIENT
  Age: 45 Year
  Sex: Male

DRUGS (1)
  1. FABRAZYME [Suspect]
     Active Substance: AGALSIDASE BETA
     Indication: FABRY^S DISEASE
     Dosage: 75 MG,QOW
     Route: 041
     Dates: start: 20040115

REACTIONS (2)
  - Infusion related reaction [Unknown]
  - Device related infection [Unknown]

NARRATIVE: CASE EVENT DATE: 201410
